FAERS Safety Report 6125693-2 (Version None)
Quarter: 2009Q1

REPORT INFORMATION
  Report Type: 
  Country: None (occurrence: None)
  Receive Date: 20090319
  Receipt Date: 20090319
  Transmission Date: 20090719
  Serious: Yes (Life-Threatening)
  Sender: FDA-Public Use
  Company Number: None

PATIENT
  Age: 31 Year
  Sex: Male
  Weight: 68.0396 kg

DRUGS (1)
  1. CHANTIX [Suspect]
     Indication: SMOKING CESSATION THERAPY
     Dosage: TWICE DAILY PO
     Route: 048
     Dates: start: 20090225, end: 20090315

REACTIONS (5)
  - AGGRESSION [None]
  - ALCOHOL USE [None]
  - AMNESIA [None]
  - ANGER [None]
  - MOOD SWINGS [None]
